FAERS Safety Report 10050000 (Version 1)
Quarter: 2014Q2

REPORT INFORMATION
  Report Type: Spontaneous
  Country: FR (occurrence: FR)
  Receive Date: 20140401
  Receipt Date: 20140401
  Transmission Date: 20141212
  Serious: Yes (Hospitalization)
  Sender: FDA-Public Use
  Company Number: PHHY2014FR034163

PATIENT
  Age: 51 Year
  Sex: Female
  Weight: 59 kg

DRUGS (3)
  1. TEGRETOL [Suspect]
     Indication: CONVULSION
     Dosage: UNK UKN, UNK
     Route: 048
     Dates: start: 20140214, end: 20140228
  2. TEGRETOL [Suspect]
     Dosage: 400 UNK, (200, 2 IN 1 DAY)
     Route: 048
     Dates: start: 20140301, end: 20140304
  3. ARAVA [Suspect]
     Dosage: 40 MG, (20 MG, 2 IN 1 DAY)
     Route: 048

REACTIONS (2)
  - Neutropenia [Recovering/Resolving]
  - Thrombocytopenia [Recovering/Resolving]
